FAERS Safety Report 5302973-1 (Version None)
Quarter: 2007Q2

REPORT INFORMATION
  Report Type: 
  Country: None (occurrence: None)
  Receive Date: 20070420
  Receipt Date: 20070411
  Transmission Date: 20071010
  Serious: Yes (Death)
  Sender: FDA-Public Use
  Company Number: GB-JNJFOC-20070104027

PATIENT
  Age: 45 Year
  Sex: Female

DRUGS (3)
  1. CAELYX [Suspect]
     Indication: OVARIAN CANCER
     Dosage: 40 MG/M2
     Route: 042
  2. DEXAMETHASONE 0.5MG TAB [Concomitant]
     Indication: PREMEDICATION
     Route: 042
  3. GRANISETRON [Concomitant]
     Indication: PREMEDICATION
     Route: 042

REACTIONS (4)
  - HOT FLUSH [None]
  - INFUSION RELATED REACTION [None]
  - LOSS OF CONSCIOUSNESS [None]
  - OVARIAN CANCER [None]
